FAERS Safety Report 8024285-8 (Version None)
Quarter: 2012Q1

REPORT INFORMATION
  Report Type: 
  Country: None (occurrence: None)
  Receive Date: 20120105
  Receipt Date: 20111223
  Transmission Date: 20120608
  Serious: Yes (Hospitalization)
  Sender: FDA-Public Use
  Company Number: FR-SANOFI-AVENTIS-2011SA084347

PATIENT
  Age: 73 Year
  Sex: Male

DRUGS (5)
  1. LASIX [Suspect]
     Route: 048
  2. POTASSIUM CHLORIDE [Concomitant]
     Route: 048
  3. SORAFENIB [Suspect]
     Route: 048
     Dates: start: 20110901, end: 20111024
  4. NEBIVOLOL HCL [Concomitant]
     Route: 048
  5. PERINDOPRIL ERBUMINE [Concomitant]
     Route: 065

REACTIONS (1)
  - BLOOD CREATINE PHOSPHOKINASE INCREASED [None]
